FAERS Safety Report 18682330 (Version 1)
Quarter: 2020Q4

REPORT INFORMATION
  Report Type: Spontaneous
  Country: US (occurrence: US)
  Receive Date: 20201230
  Receipt Date: 20201230
  Transmission Date: 20210114
  Serious: No
  Sender: FDA-Public Use
  Company Number: US-KVK-TECH, INC-20201100012

PATIENT
  Age: 69 Year
  Sex: Female
  Weight: 75.3 kg

DRUGS (2)
  1. OXYBUTYNIN CHLORIDE TABLETS, USP [Suspect]
     Active Substance: OXYBUTYNIN CHLORIDE
     Indication: PRODUCT USED FOR UNKNOWN INDICATION
     Dosage: 5 MILLIGRAM, 1-2 TIMES A DAY
  2. OXYBUTYNIN CHLORIDE TABLETS, USP [Suspect]
     Active Substance: OXYBUTYNIN CHLORIDE
     Dosage: 5 MILLIGRAM, QD

REACTIONS (2)
  - Dry mouth [Unknown]
  - Drug ineffective [Unknown]
